FAERS Safety Report 12527273 (Version 1)
Quarter: 2016Q3

REPORT INFORMATION
  Report Type: Report from Study
  Country: US (occurrence: US)
  Receive Date: 20160705
  Receipt Date: 20160705
  Transmission Date: 20161109
  Serious: Yes (Other)
  Sender: FDA-Public Use
  Company Number: PHEH2016US016194

PATIENT
  Sex: Female

DRUGS (1)
  1. GILENYA [Suspect]
     Active Substance: FINGOLIMOD HYDROCHLORIDE
     Indication: MULTIPLE SCLEROSIS
     Dosage: 0.5 MG, QD
     Route: 048

REACTIONS (7)
  - Iridocyclitis [Unknown]
  - Hypothyroidism [Unknown]
  - Autoimmune uveitis [Unknown]
  - Eye oedema [Unknown]
  - Vision blurred [Unknown]
  - Eye discharge [Unknown]
  - Blindness transient [Unknown]
